FAERS Safety Report 6409838-2 (Version None)
Quarter: 2009Q4

REPORT INFORMATION
  Report Type: 
  Country: None (occurrence: None)
  Receive Date: 20091022
  Receipt Date: 20091019
  Transmission Date: 20100525
  Serious: Yes (Life-Threatening)
  Sender: FDA-Public Use
  Company Number: AU-ABBOTT-09P-008-0603509-00

PATIENT
  Age: 7 Year
  Sex: Male

DRUGS (3)
  1. VALPROATE SODIUM [Suspect]
     Indication: CONVULSION
     Route: 038
     Dates: start: 20090101, end: 20090101
  2. WATER [Concomitant]
     Indication: DRUG USE FOR UNKNOWN INDICATION
     Route: 038
     Dates: start: 20090101, end: 20090101
  3. SIX OTHER UNSPECIFIED MEDICATIONS [Concomitant]
     Indication: DRUG USE FOR UNKNOWN INDICATION
     Route: 038
     Dates: start: 20090101, end: 20090101

REACTIONS (5)
  - CAUSTIC INJURY [None]
  - DYSPNOEA [None]
  - INCORRECT ROUTE OF DRUG ADMINISTRATION [None]
  - PAIN [None]
  - PNEUMOTHORAX [None]
